FAERS Safety Report 25173765 (Version 1)
Quarter: 2025Q2

REPORT INFORMATION
  Report Type: Spontaneous
  Country: CN (occurrence: CN)
  Receive Date: 20250408
  Receipt Date: 20250408
  Transmission Date: 20250716
  Serious: Yes (Hospitalization)
  Sender: BEXIMCO PHARMACEUTICALS
  Company Number: CN-BEXIMCO-2025BEX00024

PATIENT
  Age: 60 Year
  Sex: Female

DRUGS (3)
  1. BACLOFEN [Suspect]
     Active Substance: BACLOFEN
     Indication: Muscle spasms
     Dosage: 10 MG, 2X/DAY, TWO TIMES PER DAY
     Route: 048
     Dates: start: 20231108, end: 20231218
  2. CITALOPRAM [Concomitant]
     Active Substance: CITALOPRAM
     Dosage: 20 MG, 1X/DAY
  3. OXCARBAZEPINE [Concomitant]
     Active Substance: OXCARBAZEPINE
     Dosage: 0.3 G, 3X/DAY

REACTIONS (1)
  - Central sleep apnoea syndrome [Recovering/Resolving]
